FAERS Safety Report 25742710 (Version 1)
Quarter: 2025Q3

REPORT INFORMATION
  Report Type: Spontaneous
  Country: EU (occurrence: EU)
  Receive Date: 20250830
  Receipt Date: 20250830
  Transmission Date: 20251021
  Serious: Yes (Other)
  Sender: CELLTRION
  Company Number: EU-PFIZER INC-202500037808

PATIENT

DRUGS (8)
  1. TRASTUZUMAB [Suspect]
     Active Substance: TRASTUZUMAB
     Indication: Breast cancer metastatic
     Dates: start: 202208, end: 202307
  2. TRASTUZUMAB [Suspect]
     Active Substance: TRASTUZUMAB
     Dates: start: 202208, end: 202307
  3. EXEMESTANE [Suspect]
     Active Substance: EXEMESTANE
     Indication: Breast cancer metastatic
     Route: 048
     Dates: start: 202208, end: 202307
  4. DOCETAXEL [Suspect]
     Active Substance: DOCETAXEL
     Indication: Breast cancer metastatic
     Route: 048
     Dates: start: 202208, end: 202307
  5. PERTUZUMAB [Suspect]
     Active Substance: PERTUZUMAB
     Indication: Breast cancer metastatic
     Dates: start: 202208, end: 202307
  6. PERTUZUMAB [Suspect]
     Active Substance: PERTUZUMAB
     Dates: start: 202208, end: 202307
  7. ESCITALOPRAM [Concomitant]
     Active Substance: ESCITALOPRAM OXALATE
  8. MEXAZOLAM [Concomitant]
     Active Substance: MEXAZOLAM

REACTIONS (7)
  - Breast cancer metastatic [Unknown]
  - Metastases to bone [Unknown]
  - Metastases to peritoneum [Unknown]
  - Malignant neoplasm progression [Unknown]
  - Gamma-glutamyltransferase increased [Unknown]
  - Diarrhoea [Unknown]
  - Mucosal inflammation [Unknown]

NARRATIVE: CASE EVENT DATE: 20230701
